FAERS Safety Report 15884206 (Version 1)
Quarter: 2019Q1

REPORT INFORMATION
  Report Type: Spontaneous
  Country: US (occurrence: US)
  Receive Date: 20190129
  Receipt Date: 20190129
  Transmission Date: 20190417
  Serious: No
  Sender: FDA-Public Use
  Company Number: US-PFIZER INC-2018177644

PATIENT
  Age: 47 Year
  Sex: Female
  Weight: 86.17 kg

DRUGS (12)
  1. FETZIMA [Concomitant]
     Active Substance: LEVOMILNACIPRAN HYDROCHLORIDE
     Indication: ANTIDEPRESSANT THERAPY
     Dosage: 40 MG, 2X/DAY
     Route: 048
  2. IMITREX [Concomitant]
     Active Substance: SUMATRIPTAN SUCCINATE
     Dosage: UNK, AS NEEDED (100 PRN)
  3. OLANZAPINE. [Suspect]
     Active Substance: OLANZAPINE
     Indication: PSYCHOTIC DISORDER
  4. LYRICA [Suspect]
     Active Substance: PREGABALIN
     Dosage: 250 MG, DAILY
  5. LYRICA [Suspect]
     Active Substance: PREGABALIN
     Indication: NEUROPATHY PERIPHERAL
     Dosage: 100 MG, 2X/DAY
     Dates: start: 20180418
  6. OLANZAPINE. [Suspect]
     Active Substance: OLANZAPINE
     Indication: POST-TRAUMATIC STRESS DISORDER
  7. TOPAMAX [Suspect]
     Active Substance: TOPIRAMATE
     Indication: FIBROMYALGIA
     Dosage: 150 MG, DAILY
  8. LYRICA [Suspect]
     Active Substance: PREGABALIN
     Indication: ARTHRALGIA
     Dosage: 50 MG, 1X/DAY
     Dates: start: 20180418
  9. LYRICA [Suspect]
     Active Substance: PREGABALIN
     Indication: FIBROMYALGIA
     Dosage: 400 MG, DAILY, (400MG A DAY FOR ABOUT A WEEK)
  10. OLANZAPINE. [Suspect]
     Active Substance: OLANZAPINE
     Indication: NIGHTMARE
     Dosage: 7.5 MG, 1X/DAY AT BEDTIME
     Route: 048
     Dates: start: 201810
  11. TOPAMAX [Suspect]
     Active Substance: TOPIRAMATE
     Indication: MIGRAINE
     Dosage: 100 MG, 2X/DAY IN THE MORNING AND AT NIGHT
     Route: 048
  12. CLONIDINE. [Concomitant]
     Active Substance: CLONIDINE
     Dosage: 0.1

REACTIONS (15)
  - Sedation [Recovering/Resolving]
  - Influenza [Unknown]
  - Stress [Unknown]
  - Memory impairment [Unknown]
  - Parosmia [Unknown]
  - Dysgeusia [Unknown]
  - Glucose tolerance impaired [Unknown]
  - Product use issue [Unknown]
  - Weight increased [Unknown]
  - Feeling abnormal [Unknown]
  - Dysphemia [Unknown]
  - Pyrexia [Unknown]
  - Visual impairment [Unknown]
  - Swelling [Unknown]
  - Product dose omission [Unknown]

NARRATIVE: CASE EVENT DATE: 20180418
